FAERS Safety Report 14829890 (Version 5)
Quarter: 2020Q1

REPORT INFORMATION
  Report Type: Spontaneous
  Country: US (occurrence: US)
  Receive Date: 20180430
  Receipt Date: 20200220
  Transmission Date: 20200409
  Serious: Yes (Other)
  Sender: FDA-Public Use
  Company Number: US-ASTRAZENECA-2018SE52324

PATIENT
  Age: 873 Month
  Sex: Male

DRUGS (21)
  1. NEXIUM [Suspect]
     Active Substance: ESOMEPRAZOLE MAGNESIUM
     Indication: DYSPEPSIA
     Route: 048
     Dates: start: 20140502
  2. VIAGRA [Concomitant]
     Active Substance: SILDENAFIL CITRATE
  3. PHENTERMINE. [Concomitant]
     Active Substance: PHENTERMINE
  4. METHYLPRED DOSEPAK [Concomitant]
  5. NEXIUM [Suspect]
     Active Substance: ESOMEPRAZOLE MAGNESIUM
     Indication: DYSPEPSIA
     Route: 048
     Dates: start: 20140502
  6. AZITHROMYCIN ANHYDROUS. [Concomitant]
     Active Substance: AZITHROMYCIN ANHYDROUS
  7. MOTRIN [Concomitant]
     Active Substance: IBUPROFEN
     Indication: HEADACHE
  8. TOPROL XL [Concomitant]
     Active Substance: METOPROLOL SUCCINATE
  9. SYMBICORT [Concomitant]
     Active Substance: BUDESONIDE\FORMOTEROL FUMARATE DIHYDRATE
  10. NEXIUM [Suspect]
     Active Substance: ESOMEPRAZOLE MAGNESIUM
     Indication: DYSPEPSIA
     Route: 048
     Dates: start: 20140502, end: 20140620
  11. NEXIUM 24HR [Suspect]
     Active Substance: ESOMEPRAZOLE MAGNESIUM
     Indication: DYSPEPSIA
     Route: 048
     Dates: start: 20140502, end: 20140620
  12. LISINOPRIL. [Concomitant]
     Active Substance: LISINOPRIL
     Dates: start: 20140523
  13. CRESTOR [Concomitant]
     Active Substance: ROSUVASTATIN CALCIUM
  14. MULTAQ [Concomitant]
     Active Substance: DRONEDARONE
  15. ONDANSETRON [Concomitant]
     Active Substance: ONDANSETRON
     Dates: start: 20140502
  16. ELIQUIS [Concomitant]
     Active Substance: APIXABAN
  17. NEXIUM [Suspect]
     Active Substance: ESOMEPRAZOLE MAGNESIUM
     Indication: DYSPEPSIA
     Route: 048
     Dates: start: 201405, end: 201406
  18. NEXIUM [Suspect]
     Active Substance: ESOMEPRAZOLE MAGNESIUM
     Indication: DYSPEPSIA
     Route: 048
     Dates: start: 20140502
  19. ASPIRIN. [Concomitant]
     Active Substance: ASPIRIN
  20. VITAMIN D [Concomitant]
     Active Substance: VITAMIN D NOS
     Dates: start: 2017, end: 2018
  21. CIALIS [Concomitant]
     Active Substance: TADALAFIL

REACTIONS (5)
  - Renal failure [Not Recovered/Not Resolved]
  - End stage renal disease [Unknown]
  - Acute kidney injury [Unknown]
  - Hyperparathyroidism secondary [Unknown]
  - Chronic kidney disease [Unknown]

NARRATIVE: CASE EVENT DATE: 201405
